FAERS Safety Report 5012928-2 (Version None)
Quarter: 2006Q2

REPORT INFORMATION
  Report Type: 
  Country: None (occurrence: None)
  Receive Date: 20060525
  Receipt Date: 20060525
  Transmission Date: 20061013
  Serious: Yes (Hospitalization)
  Sender: FDA-Public Use
  Company Number: None

PATIENT
  Sex: Female
  Weight: 72.27 kg

DRUGS (6)
  1. ABILIFY [Suspect]
     Indication: SCHIZOPHRENIA
     Dosage: 15MG QHS PO
     Route: 048
     Dates: start: 20050610, end: 20050612
  2. PREVACID [Concomitant]
  3. SERTRALINE [Concomitant]
  4. NYSTATIN [Concomitant]
  5. SWISH/HOLD [Concomitant]
  6. HALOPERIDOL [Concomitant]

REACTIONS (2)
  - AGRANULOCYTOSIS [None]
  - LEUKOPENIA [None]
